FAERS Safety Report 7929084-0 (Version None)
Quarter: 2011Q4

REPORT INFORMATION
  Report Type: 
  Country: None (occurrence: None)
  Receive Date: 20111119
  Receipt Date: 20111109
  Transmission Date: 20120403
  Serious: Yes (Hospitalization)
  Sender: FDA-Public Use
  Company Number: US-ASTRAZENECA-2010SE40753

PATIENT
  Age: 50 Year
  Sex: Female

DRUGS (4)
  1. PRILOSEC [Suspect]
     Route: 048
  2. ALBUTEROL [Concomitant]
  3. SYMBICORT [Suspect]
     Route: 055
  4. NEXIUM [Suspect]
     Route: 048

REACTIONS (7)
  - ASTHMA [None]
  - RESPIRATORY ARREST [None]
  - DRUG INEFFECTIVE [None]
  - HYPERTENSION [None]
  - DIABETES MELLITUS [None]
  - CARDIAC FAILURE CONGESTIVE [None]
  - RESPIRATORY DISORDER [None]
